FAERS Safety Report 23612479 (Version 1)
Quarter: 2024Q1

REPORT INFORMATION
  Report Type: Spontaneous
  Country: US (occurrence: US)
  Receive Date: 20240308
  Receipt Date: 20240308
  Transmission Date: 20240410
  Serious: No
  Sender: FDA-Public Use
  Company Number: US-MYOVANT SCIENCES GMBH-2023MYSCI1201029

PATIENT
  Age: 92 Year
  Sex: Male

DRUGS (6)
  1. ORGOVYX [Suspect]
     Active Substance: RELUGOLIX
     Indication: Prostate cancer
     Dosage: 120 MILLIGRAM, QD
     Route: 048
     Dates: start: 20220719, end: 20231227
  2. ALLOPURINOL [Concomitant]
     Active Substance: ALLOPURINOL
     Indication: Gout
     Dosage: 300 MILLIGRAM, QD
     Route: 065
  3. SILODOSIN [Concomitant]
     Active Substance: SILODOSIN
     Indication: Micturition disorder
     Dosage: 8 MILLIGRAM, QD
     Route: 065
  4. SPIRONOLACTONE [Concomitant]
     Active Substance: SPIRONOLACTONE
     Indication: Swelling
     Dosage: 25 MILLIGRAM, QD
     Route: 065
  5. LUMIGAN [Concomitant]
     Active Substance: BIMATOPROST
     Indication: Glaucoma
     Dosage: 1 UNK, QD
     Route: 065
  6. SYSTANE HYDRATION PF PRESERVATIVE FREE [Concomitant]
     Active Substance: POLYETHYLENE GLYCOL 400\PROPYLENE GLYCOL
     Indication: Dry eye
     Dosage: 4 DROP, QD
     Route: 065

REACTIONS (2)
  - Conjunctival haemorrhage [Unknown]
  - Therapy interrupted [Not Recovered/Not Resolved]

NARRATIVE: CASE EVENT DATE: 20231228
